FAERS Safety Report 19950797 (Version 1)
Quarter: 2021Q4

REPORT INFORMATION
  Report Type: Spontaneous
  Country: GB (occurrence: GB)
  Receive Date: 20211013
  Receipt Date: 20211013
  Transmission Date: 20220303
  Serious: Yes (Other)
  Sender: FDA-Public Use
  Company Number: None

PATIENT
  Age: 41 Year
  Sex: Female
  Weight: 118 kg

DRUGS (4)
  1. OMEPRAZOLE [Interacting]
     Active Substance: OMEPRAZOLE
     Dosage: TAKE ONE CAPSULE ONCE A DAY WHILST TAKING NAPROXEN
     Dates: start: 20210922
  2. FLUTICASONE PROPIONATE\FORMOTEROL FUMARATE [Concomitant]
     Active Substance: FLUTICASONE PROPIONATE\FORMOTEROL FUMARATE
     Dosage: 2 SEPARATED DOSES
     Route: 050
     Dates: start: 20210408
  3. NAPROXEN [Interacting]
     Active Substance: NAPROXEN
     Dosage: TAKE ONE TABLET WITH OR JUST AFTER FOOD TWICE A... IN 2 SEPARATED DOSES
     Dates: start: 20210922
  4. ALBUTEROL [Concomitant]
     Active Substance: ALBUTEROL
     Dosage: INHALE TWO PUFFS AS DIRECTED
     Route: 050
     Dates: start: 20210408

REACTIONS (2)
  - Vision blurred [Recovered/Resolved]
  - Drug interaction [Recovered/Resolved]

NARRATIVE: CASE EVENT DATE: 20210924
